FAERS Safety Report 13959740 (Version 2)
Quarter: 2017Q3

REPORT INFORMATION
  Report Type: Spontaneous
  Country: US (occurrence: US)
  Receive Date: 20170911
  Receipt Date: 20170919
  Transmission Date: 20171128
  Serious: Yes (Hospitalization)
  Sender: FDA-Public Use
  Company Number: US-VERTEX PHARMACEUTICALS-2017-004859

PATIENT
  Age: 18 Year
  Sex: Male
  Weight: 70 kg

DRUGS (12)
  1. PROAIR HFA [Concomitant]
     Active Substance: ALBUTEROL SULFATE
     Route: 055
  2. ADVAIR HFA [Concomitant]
     Active Substance: FLUTICASONE PROPIONATE\SALMETEROL XINAFOATE
     Route: 055
  3. GLUCAGON. [Concomitant]
     Active Substance: GLUCAGON
  4. PREVACID [Concomitant]
     Active Substance: LANSOPRAZOLE
     Dosage: 15 MG, UNK
  5. PULMOZYME [Concomitant]
     Active Substance: DORNASE ALFA
     Dosage: 1 MG/ML, UNK
     Route: 055
  6. CREON [Concomitant]
     Active Substance: PANCRELIPASE AMYLASE\PANCRELIPASE LIPASE\PANCRELIPASE PROTEASE
  7. SODIUM CHLORIDE. [Concomitant]
     Active Substance: SODIUM CHLORIDE
     Route: 055
  8. INSULIN GLARGINE [Concomitant]
     Active Substance: INSULIN GLARGINE
  9. ORKAMBI [Suspect]
     Active Substance: IVACAFTOR\LUMACAFTOR
     Indication: CYSTIC FIBROSIS
     Dosage: 2 DF (200-125 MG EACH), BID
     Route: 048
     Dates: start: 20150817
  10. ERGOCALCIFEROL. [Concomitant]
     Active Substance: ERGOCALCIFEROL
  11. INSULIN [Concomitant]
     Active Substance: INSULIN NOS
  12. NASONEX [Concomitant]
     Active Substance: MOMETASONE FUROATE

REACTIONS (2)
  - Infective pulmonary exacerbation of cystic fibrosis [Recovering/Resolving]
  - Steatorrhoea [Unknown]

NARRATIVE: CASE EVENT DATE: 20170808
